FAERS Safety Report 9232900 (Version 1)
Quarter: 2013Q2

REPORT INFORMATION
  Report Type: Spontaneous
  Country: US (occurrence: None)
  Receive Date: 20130412
  Receipt Date: 20130412
  Transmission Date: 20140414
  Serious: Yes (Death)
  Sender: FDA-Public Use
  Company Number: 2013P1004558

PATIENT
  Sex: 0

DRUGS (1)
  1. FENTANYL [Suspect]
     Dosage: 100 UG/H

REACTIONS (2)
  - Toxicity to various agents [None]
  - Accidental death [None]
